FAERS Safety Report 7400279-8 (Version None)
Quarter: 2011Q2

REPORT INFORMATION
  Report Type: 
  Country: None (occurrence: None)
  Receive Date: 20110407
  Receipt Date: 20110329
  Transmission Date: 20111010
  Serious: Yes (Hospitalization, Other)
  Sender: FDA-Public Use
  Company Number: US-ASTRAZENECA-2011SE18091

PATIENT
  Age: 56 Year
  Sex: Male
  Weight: 68 kg

DRUGS (3)
  1. LISINOPRIL [Concomitant]
  2. FLUOXETINE [Concomitant]
  3. SEROQUEL [Suspect]
     Route: 048

REACTIONS (9)
  - FOREARM FRACTURE [None]
  - NO ADVERSE EVENT [None]
  - DRUG DOSE OMISSION [None]
  - JOINT DISLOCATION [None]
  - ROAD TRAFFIC ACCIDENT [None]
  - THERAPEUTIC RESPONSE UNEXPECTED [None]
  - INSOMNIA [None]
  - SOMNOLENCE [None]
  - OFF LABEL USE [None]
